FAERS Safety Report 6271299-4 (Version None)
Quarter: 2009Q3

REPORT INFORMATION
  Report Type: 
  Country: None (occurrence: None)
  Receive Date: 20090716
  Receipt Date: 20090716
  Transmission Date: 20100115
  Serious: Yes (Other)
  Sender: FDA-Public Use
  Company Number: None

PATIENT
  Age: 72 Year
  Sex: Female
  Weight: 71.6683 kg

DRUGS (2)
  1. SIMCOR [Suspect]
     Indication: BLOOD CHOLESTEROL
     Dosage: 1 PER DAY - ASPRIN
     Dates: start: 20090222, end: 20090507
  2. SIMCOR [Suspect]
     Indication: BLOOD CHOLESTEROL
     Dosage: 1 PER DAY - ASPRIN
     Dates: start: 20090508, end: 20090509

REACTIONS (13)
  - AURICULAR SWELLING [None]
  - BURNING SENSATION [None]
  - GENERALISED ERYTHEMA [None]
  - GINGIVAL SWELLING [None]
  - HOT FLUSH [None]
  - LIP BLISTER [None]
  - OEDEMA PERIPHERAL [None]
  - PRURITUS [None]
  - RASH ERYTHEMATOUS [None]
  - RASH GENERALISED [None]
  - SWELLING [None]
  - SWELLING FACE [None]
  - SWOLLEN TONGUE [None]
